FAERS Safety Report 4448269-1 (Version None)
Quarter: 2004Q3

REPORT INFORMATION
  Report Type: 
  Country: None (occurrence: None)
  Receive Date: 20040910
  Receipt Date: 20040817
  Transmission Date: 20050211
  Serious: Yes (Death, Hospitalization)
  Sender: FDA-Public Use
  Company Number: 601470

PATIENT
  Age: 74 Year
  Sex: Male
  Weight: 79.3795 kg

DRUGS (12)
  1. GAMMAGARD S/D [Suspect]
     Indication: MYASTHENIA GRAVIS
     Dosage: 70 GM; QW; INTRAVENOUS
     Route: 042
     Dates: start: 20040709, end: 20040711
  2. GAMMAGARD S/D [Suspect]
  3. PREDNISONE [Concomitant]
  4. PRILOSEC [Concomitant]
  5. VERAPAMIL [Concomitant]
  6. IMURAN [Concomitant]
  7. MESTINON [Concomitant]
  8. FUROSEMIDE [Concomitant]
  9. ZOLOFT [Concomitant]
  10. ZEFFRA [Concomitant]
  11. TYLENOL [Concomitant]
  12. LOPERAMIDE HCL [Concomitant]

REACTIONS (1)
  - MYOCARDIAL INFARCTION [None]
